FAERS Safety Report 13290658 (Version 2)
Quarter: 2017Q1

REPORT INFORMATION
  Report Type: Spontaneous
  Country: US (occurrence: US)
  Receive Date: 20170302
  Receipt Date: 20170309
  Transmission Date: 20170428
  Serious: No
  Sender: FDA-Public Use
  Company Number: US-HORIZON-VIM-0027-2017

PATIENT
  Age: 53 Year
  Sex: Female

DRUGS (1)
  1. VIMOVO [Suspect]
     Active Substance: ESOMEPRAZOLE MAGNESIUM\NAPROXEN
     Indication: MUSCULOSKELETAL PAIN
     Dosage: 500 MG BID
     Dates: start: 20170209, end: 20170212

REACTIONS (2)
  - Off label use [Unknown]
  - Macule [Recovering/Resolving]

NARRATIVE: CASE EVENT DATE: 20170212
